FAERS Safety Report 6805580-4 (Version None)
Quarter: 2010Q2

REPORT INFORMATION
  Report Type: 
  Country: None (occurrence: None)
  Receive Date: 20100628
  Receipt Date: 20071221
  Transmission Date: 20101027
  Serious: No
  Sender: FDA-Public Use
  Company Number: US-PFIZER INC-2007093172

PATIENT
  Sex: Male
  Weight: 118.2 kg

DRUGS (4)
  1. GEODON [Suspect]
     Indication: BIPOLAR DISORDER
     Route: 048
     Dates: start: 20071017, end: 20071130
  2. DIAZEPAM [Concomitant]
  3. KLONOPIN [Concomitant]
  4. DRUG, UNSPECIFIED [Concomitant]
     Indication: RESTLESS LEGS SYNDROME

REACTIONS (3)
  - DEPRESSION [None]
  - HEADACHE [None]
  - TACHYPHRENIA [None]
